FAERS Safety Report 7521639-0 (Version None)
Quarter: 2011Q2

REPORT INFORMATION
  Report Type: 
  Country: None (occurrence: None)
  Receive Date: 20110603
  Receipt Date: 20110524
  Transmission Date: 20111010
  Serious: Yes (Other)
  Sender: FDA-Public Use
  Company Number: BR-JNJFOC-20110512554

PATIENT
  Age: 58 Year
  Sex: Female
  Weight: 60 kg

DRUGS (1)
  1. ACETAMINOPHEN AND CODEINE PHOSPHATE [Suspect]
     Indication: ANALGESIC THERAPY
     Dosage: THE PATIENT HAD TAKEN 4 TABLETS
     Route: 048
     Dates: start: 20110523

REACTIONS (6)
  - TREMOR [None]
  - NAUSEA [None]
  - SOMNOLENCE [None]
  - DIZZINESS [None]
  - TONGUE DISORDER [None]
  - HYPOAESTHESIA [None]
